FAERS Safety Report 16736168 (Version 1)
Quarter: 2019Q3

REPORT INFORMATION
  Report Type: Spontaneous
  Country: US (occurrence: US)
  Receive Date: 20190823
  Receipt Date: 20190823
  Transmission Date: 20191005
  Serious: Yes (Other)
  Sender: FDA-Public Use
  Company Number: US-ROCHE-2379150

PATIENT
  Sex: Male
  Weight: 91.25 kg

DRUGS (2)
  1. AVASTIN [Suspect]
     Active Substance: BEVACIZUMAB
     Indication: EYE HAEMORRHAGE
     Route: 065
  2. AVASTIN [Suspect]
     Active Substance: BEVACIZUMAB
     Indication: MACULAR DEGENERATION

REACTIONS (4)
  - Atrial fibrillation [Unknown]
  - Intentional product use issue [Unknown]
  - Off label use [Unknown]
  - Metamorphopsia [Unknown]
